FAERS Safety Report 6300038-3 (Version None)
Quarter: 2009Q3

REPORT INFORMATION
  Report Type: 
  Country: None (occurrence: None)
  Receive Date: 20090806
  Receipt Date: 20090803
  Transmission Date: 20100115
  Serious: Yes (Other)
  Sender: FDA-Public Use
  Company Number: DE-GILEAD-2009-0021966

PATIENT
  Sex: Male
  Weight: 59.7 kg

DRUGS (3)
  1. HEPSERA [Suspect]
     Indication: HEPATITIS B VIRUS TEST
     Route: 048
     Dates: start: 20040101
  2. CEFFIX [Concomitant]
     Indication: HEPATITIS B VIRUS TEST
     Route: 048
     Dates: start: 20050101
  3. CEFFIX [Concomitant]

REACTIONS (2)
  - BLOOD CREATININE INCREASED [None]
  - PROTEINURIA [None]
